FAERS Safety Report 10891716 (Version 3)
Quarter: 2015Q2

REPORT INFORMATION
  Report Type: Spontaneous
  Country: CH (occurrence: CH)
  Receive Date: 20150306
  Receipt Date: 20150422
  Transmission Date: 20150821
  Serious: Yes (Hospitalization)
  Sender: FDA-Public Use
  Company Number: CH-JNJFOC-20150220404

PATIENT
  Age: 28 Year
  Sex: Female

DRUGS (18)
  1. TOPAMAX [Suspect]
     Active Substance: TOPIRAMATE
     Indication: EPILEPSY CONGENITAL
     Route: 048
     Dates: start: 2011
  2. CERAZETTE [Concomitant]
     Active Substance: DESOGESTREL
     Indication: ORAL CONTRACEPTION
     Dosage: LONG TERM
     Route: 048
     Dates: end: 20150129
  3. TOPAMAX [Suspect]
     Active Substance: TOPIRAMATE
     Indication: EPILEPSY CONGENITAL
     Route: 048
     Dates: start: 201408, end: 20150129
  4. CIPROFLOXACINE [Suspect]
     Active Substance: CIPROFLOXACIN
     Indication: PYELONEPHRITIS ACUTE
     Route: 041
     Dates: start: 20150127, end: 20150204
  5. MORPHINE [Concomitant]
     Active Substance: MORPHINE
     Indication: ABDOMINAL PAIN
     Route: 041
     Dates: start: 20150125
  6. TOPAMAX [Suspect]
     Active Substance: TOPIRAMATE
     Indication: EPILEPSY CONGENITAL
     Route: 048
     Dates: start: 2008
  7. TOPAMAX [Suspect]
     Active Substance: TOPIRAMATE
     Indication: EPILEPSY CONGENITAL
     Route: 048
     Dates: start: 2007
  8. ROCEPHIN [Suspect]
     Active Substance: CEFTRIAXONE SODIUM
     Indication: PYELONEPHRITIS ACUTE
     Route: 041
     Dates: start: 20150124, end: 20150127
  9. MOTILIUM [Concomitant]
     Active Substance: DOMPERIDONE
     Indication: VOMITING
     Route: 048
     Dates: start: 20150127, end: 20150129
  10. BUSCOPAN [Concomitant]
     Active Substance: BUTYLSCOPOLAMINE BROMIDE
     Indication: ABDOMINAL PAIN
     Route: 041
     Dates: start: 20150125, end: 20150129
  11. CIPROFLOXACINE [Suspect]
     Active Substance: CIPROFLOXACIN
     Indication: PYELONEPHRITIS ACUTE
     Dosage: MUST RECEIVE 4 WEEKS OF ANTIBIOTICS
     Route: 041
     Dates: start: 20150210
  12. PERFALGAN [Suspect]
     Active Substance: ACETAMINOPHEN
     Indication: ABDOMINAL PAIN
     Dosage: 2 GM ON 24-JAN-2015
     Route: 041
     Dates: start: 20150124, end: 20150128
  13. ROCEPHIN [Suspect]
     Active Substance: CEFTRIAXONE SODIUM
     Indication: PYELONEPHRITIS ACUTE
     Route: 041
     Dates: start: 20150204, end: 20150210
  14. LAMOTRIN [Concomitant]
     Indication: EPILEPSY CONGENITAL
     Dosage: LONG TERM
     Route: 048
  15. ZOFRAN [Concomitant]
     Active Substance: ONDANSETRON HYDROCHLORIDE
     Indication: VOMITING
     Route: 041
     Dates: start: 20150125
  16. PRIMPERAN [Concomitant]
     Active Substance: METOCLOPRAMIDE HYDROCHLORIDE
     Indication: VOMITING
     Route: 041
     Dates: start: 20150125
  17. METAMIZOLE [Suspect]
     Active Substance: METAMIZOLE
     Indication: ABDOMINAL PAIN
     Dosage: 1 GM ON 24-JAN-2015
     Route: 041
     Dates: start: 20150124, end: 20150128
  18. URISPAS [Concomitant]
     Active Substance: FLAVOXATE HYDROCHLORIDE
     Indication: PYELONEPHRITIS ACUTE
     Route: 048
     Dates: start: 20150125, end: 20150129

REACTIONS (6)
  - Pancreatitis [Recovering/Resolving]
  - Pyelonephritis acute [Unknown]
  - Liver injury [Recovering/Resolving]
  - Hepatocellular injury [Recovering/Resolving]
  - Nephrolithiasis [Recovered/Resolved]
  - Prescribed overdose [Recovered/Resolved]

NARRATIVE: CASE EVENT DATE: 20150124
